FAERS Safety Report 8550133-3 (Version None)
Quarter: 2012Q3

REPORT INFORMATION
  Report Type: 
  Country: None (occurrence: None)
  Receive Date: 20120730
  Receipt Date: 20120719
  Transmission Date: 20120928
  Serious: Yes (Hospitalization)
  Sender: FDA-Public Use
  Company Number: CN-ASTRAZENECA-2010SE35259

PATIENT
  Age: 69 Year
  Sex: Male
  Weight: 55.8 kg

DRUGS (2)
  1. SYMBICORT [Suspect]
     Indication: ASTHMA
     Dosage: 320/9 UG
     Route: 055
     Dates: start: 20100101
  2. SYMBICORT [Suspect]
     Dosage: 160/4.5UG/TIME BID
     Route: 055
     Dates: start: 20100401, end: 20100811

REACTIONS (2)
  - ABDOMINAL PAIN UPPER [None]
  - MOUTH ULCERATION [None]
